FAERS Safety Report 17005800 (Version 1)
Quarter: 2019Q4

REPORT INFORMATION
  Report Type: Spontaneous
  Country: US (occurrence: US)
  Receive Date: 20191105
  Receipt Date: 20191105
  Transmission Date: 20200122
  Serious: No
  Sender: FDA-Public Use
  Company Number: None

PATIENT
  Age: 41 Year
  Sex: Male
  Weight: 94.5 kg

DRUGS (1)
  1. MK677 [Suspect]
     Active Substance: IBUTAMOREN MESYLATE

REACTIONS (2)
  - Malaise [None]
  - Hypoaesthesia [None]

NARRATIVE: CASE EVENT DATE: 20191103
